FAERS Safety Report 17210079 (Version 2)
Quarter: 2021Q4

REPORT INFORMATION
  Report Type: Spontaneous
  Country: US (occurrence: US)
  Receive Date: 20191227
  Receipt Date: 20211007
  Transmission Date: 20220303
  Serious: Yes (Hospitalization)
  Sender: FDA-Public Use
  Company Number: US-INDIVIOR LIMITED-INDV-122232-2019

PATIENT
  Sex: Male

DRUGS (6)
  1. SUBOXONE [Suspect]
     Active Substance: BUPRENORPHINE HYDROCHLORIDE\NALOXONE HYDROCHLORIDE
     Indication: Drug dependence
     Dosage: UNK
     Route: 065
     Dates: start: 201902, end: 2019
  2. SUBOXONE [Suspect]
     Active Substance: BUPRENORPHINE HYDROCHLORIDE\NALOXONE HYDROCHLORIDE
     Dosage: UNK
     Route: 065
     Dates: start: 20190712, end: 201908
  3. SUBLOCADE [Suspect]
     Active Substance: BUPRENORPHINE
     Indication: Drug dependence
     Dosage: 300 MILLIGRAM, QMO
     Route: 058
     Dates: start: 2019
  4. SUBLOCADE [Suspect]
     Active Substance: BUPRENORPHINE
     Dosage: 300 MILLIGRAM (PUSHING SHOT DATE CLOSER)
     Route: 058
  5. SUBLOCADE [Suspect]
     Active Substance: BUPRENORPHINE
     Indication: Drug dependence
     Dosage: 100 MILLIGRAM, QMO
     Route: 058
     Dates: start: 2019
  6. SUBLOCADE [Suspect]
     Active Substance: BUPRENORPHINE
     Dosage: 100 MILLIGRAM, QMO (RESTARTED)
     Route: 058
     Dates: start: 201908

REACTIONS (5)
  - Drug detoxification [Recovered/Resolved]
  - Inappropriate schedule of product administration [Unknown]
  - Injection site abscess [Not Recovered/Not Resolved]
  - Drug effect less than expected [Recovered/Resolved]
  - Drug dependence [Not Recovered/Not Resolved]

NARRATIVE: CASE EVENT DATE: 20190101
